FAERS Safety Report 16883757 (Version 1)
Quarter: 2019Q4

REPORT INFORMATION
  Report Type: Spontaneous
  Country: IN (occurrence: IN)
  Receive Date: 20191004
  Receipt Date: 20191004
  Transmission Date: 20200122
  Serious: Yes (Life-Threatening, Hospitalization, Other)
  Sender: FDA-Public Use
  Company Number: IN-CIPLA LTD.-2019IN06660

PATIENT

DRUGS (3)
  1. FOLINIC ACID [Concomitant]
     Active Substance: LEUCOVORIN
     Indication: RECTAL CANCER
     Dosage: UNK, 10 CYCLES
     Route: 065
  2. OXALIPLATIN. [Suspect]
     Active Substance: OXALIPLATIN
     Indication: RECTAL CANCER
     Dosage: UNK, 10 CYCLES
     Route: 065
  3. FLUOROURACIL. [Concomitant]
     Active Substance: FLUOROURACIL
     Indication: RECTAL CANCER
     Dosage: UNK, 10 CYCLES
     Route: 065

REACTIONS (1)
  - Focal nodular hyperplasia [Unknown]
